FAERS Safety Report 16041058 (Version 1)
Quarter: 2019Q1

REPORT INFORMATION
  Report Type: Spontaneous
  Country: GB (occurrence: GB)
  Receive Date: 20190306
  Receipt Date: 20190306
  Transmission Date: 20190418
  Serious: Yes (Other)
  Sender: FDA-Public Use
  Company Number: GB-TEVA-2019-GB-1018403

PATIENT
  Age: 58 Year
  Sex: Male

DRUGS (1)
  1. CLARITHROMYCIN. [Suspect]
     Active Substance: CLARITHROMYCIN
     Dosage: BOLUS INJECTION.
     Route: 040
     Dates: start: 20181108, end: 20181108

REACTIONS (2)
  - Incorrect drug administration rate [Unknown]
  - Injection site phlebitis [Unknown]

NARRATIVE: CASE EVENT DATE: 20181108
